FAERS Safety Report 7683234-2 (Version None)
Quarter: 2011Q3

REPORT INFORMATION
  Report Type: 
  Country: None (occurrence: None)
  Receive Date: 20110815
  Receipt Date: 20110804
  Transmission Date: 20111222
  Serious: Yes (Other)
  Sender: FDA-Public Use
  Company Number: IE-ASTRAZENECA-2011SE46959

PATIENT
  Age: 90 Year
  Sex: Female
  Weight: 52.8 kg

DRUGS (16)
  1. SYMBICORT [Concomitant]
     Indication: CHRONIC OBSTRUCTIVE PULMONARY DISEASE
     Dosage: ONE INHALER ONE DAILY
     Route: 055
     Dates: start: 20110401
  2. CENTYL K [Concomitant]
     Indication: OEDEMA
     Dates: start: 20110401
  3. COMBIVENT [Concomitant]
     Indication: CHRONIC OBSTRUCTIVE PULMONARY DISEASE
     Dates: start: 20110401
  4. CALOGEN [Concomitant]
     Indication: NUTRITIONAL SUPPORT
     Dates: start: 20110711
  5. ARTELAC [Concomitant]
     Dosage: 1-2 DROPS DAILY
     Dates: start: 20110401
  6. LEVOTHYROXINE SODIUM [Concomitant]
     Indication: THYROID DISORDER
     Dates: start: 20110401
  7. AMLODIPINE [Concomitant]
     Indication: HYPERTENSION
     Dates: start: 20110401
  8. CRESTOR [Suspect]
     Indication: HYPERCHOLESTEROLAEMIA
     Route: 048
     Dates: start: 20110623, end: 20110721
  9. DALMANE [Concomitant]
     Indication: SLEEP DISORDER
     Route: 048
     Dates: start: 20110401
  10. XANAX [Concomitant]
     Dates: start: 20110718
  11. MULTIVITAMIN [Concomitant]
  12. SPIRIVA [Concomitant]
     Indication: CHRONIC OBSTRUCTIVE PULMONARY DISEASE
     Dates: start: 20110401
  13. LEVOTHYROXINE SODIUM [Concomitant]
     Dates: start: 20110401
  14. FRESUBIN [Concomitant]
     Indication: NUTRITIONAL SUPPORT
     Dates: start: 20110401
  15. PERINDOPRIL [Concomitant]
     Dates: start: 20110401
  16. EPREX [Concomitant]
     Indication: BLOOD DISORDER
     Route: 058
     Dates: start: 20110623

REACTIONS (3)
  - MUSCLE SPASMS [None]
  - RESTLESS LEGS SYNDROME [None]
  - MUSCLE TWITCHING [None]
